FAERS Safety Report 8340219-0 (Version None)
Quarter: 2012Q2

REPORT INFORMATION
  Report Type: 
  Country: None (occurrence: None)
  Receive Date: 20120507
  Receipt Date: 20120425
  Transmission Date: 20120825
  Serious: Yes (Other)
  Sender: FDA-Public Use
  Company Number: CHPA2012US006599

PATIENT
  Age: 50 Year
  Sex: Male

DRUGS (2)
  1. PREVACID 24 HR [Suspect]
     Indication: DYSPEPSIA
     Dosage: 45 MG, QD
     Route: 048
     Dates: start: 20090101, end: 20120409
  2. OMEPRAZOLE [Suspect]
     Indication: DYSPEPSIA
     Dosage: 1 DF, ONCE/SINGLE
     Route: 048
     Dates: start: 20120409, end: 20120409

REACTIONS (8)
  - DYSPEPSIA [None]
  - OVERDOSE [None]
  - INCORRECT DRUG ADMINISTRATION DURATION [None]
  - ULCER [None]
  - WRONG TECHNIQUE IN DRUG USAGE PROCESS [None]
  - GASTRIC MUCOSAL LESION [None]
  - DIARRHOEA [None]
  - DRUG INEFFECTIVE FOR UNAPPROVED INDICATION [None]
